FAERS Safety Report 10468799 (Version 1)
Quarter: 2014Q3

REPORT INFORMATION
  Report Type: Spontaneous
  Country: JP (occurrence: JP)
  Receive Date: 20140923
  Receipt Date: 20140923
  Transmission Date: 20150326
  Serious: Yes (Death)
  Sender: FDA-Public Use
  Company Number: JP-ROCHE-1464882

PATIENT
  Age: 80 Year
  Sex: Male

DRUGS (8)
  1. ADRIACIN [Suspect]
     Active Substance: DOXORUBICIN HYDROCHLORIDE
     Indication: LYMPHOMA
     Route: 042
     Dates: start: 20140205, end: 20140630
  2. FOLIC ACID. [Concomitant]
     Active Substance: FOLIC ACID
  3. ZOLPIDEM TARTRATE. [Concomitant]
     Active Substance: ZOLPIDEM TARTRATE
  4. TRIMETHOPRIM. [Concomitant]
     Active Substance: TRIMETHOPRIM
  5. ONCOVIN [Suspect]
     Active Substance: VINCRISTINE SULFATE
     Indication: LYMPHOMA
     Route: 042
     Dates: start: 20140205, end: 20140630
  6. ENDOXAN [Suspect]
     Active Substance: CYCLOPHOSPHAMIDE
     Indication: LYMPHOMA
     Route: 042
     Dates: start: 20140205, end: 20140630
  7. RITUXIMAB [Suspect]
     Active Substance: RITUXIMAB
     Indication: LYMPHOMA
     Route: 042
     Dates: start: 20140205, end: 20140630
  8. PANTETHINE [Concomitant]
     Active Substance: PANTETHINE

REACTIONS (2)
  - Hepatic failure [Fatal]
  - Hepatitis C [Fatal]

NARRATIVE: CASE EVENT DATE: 20140326
